FAERS Safety Report 12319794 (Version 2)
Quarter: 2016Q2

REPORT INFORMATION
  Report Type: Spontaneous
  Country: US (occurrence: US)
  Receive Date: 20160429
  Receipt Date: 20160614
  Transmission Date: 20160815
  Serious: Yes (Other)
  Sender: FDA-Public Use
  Company Number: US-JNJFOC-20160324030

PATIENT
  Age: 72 Year
  Sex: Female
  Weight: 59.88 kg

DRUGS (2)
  1. DOXIL [Suspect]
     Active Substance: DOXORUBICIN HYDROCHLORIDE
     Indication: GASTRIC SARCOMA
     Route: 042
     Dates: start: 20160329, end: 20160329
  2. DOXIL [Suspect]
     Active Substance: DOXORUBICIN HYDROCHLORIDE
     Indication: GASTRIC SARCOMA
     Route: 042
     Dates: start: 20160323, end: 20160323

REACTIONS (4)
  - Anaphylactic reaction [Recovered/Resolved]
  - Product use issue [Unknown]
  - Infusion related reaction [Recovered/Resolved]
  - Off label use [Unknown]

NARRATIVE: CASE EVENT DATE: 20160323
